FAERS Safety Report 8039715-5 (Version None)
Quarter: 2012Q1

REPORT INFORMATION
  Report Type: 
  Country: None (occurrence: None)
  Receive Date: 20120111
  Receipt Date: 20111220
  Transmission Date: 20120608
  Serious: No
  Sender: FDA-Public Use
  Company Number: US-AMGEN-USASP2011068007

PATIENT
  Age: 70 Year
  Sex: Female

DRUGS (1)
  1. ENBREL [Suspect]
     Indication: RHEUMATOID ARTHRITIS
     Dosage: 25 MG, 2 TIMES/WK
     Dates: start: 20110729

REACTIONS (5)
  - MUSCLE SPASMS [None]
  - OEDEMA PERIPHERAL [None]
  - MYALGIA [None]
  - BLOOD POTASSIUM DECREASED [None]
  - FIBROMYALGIA [None]
